FAERS Safety Report 5701120-1 (Version None)
Quarter: 2008Q2

REPORT INFORMATION
  Report Type: 
  Country: None (occurrence: None)
  Receive Date: 20080410
  Receipt Date: 20080403
  Transmission Date: 20081010
  Serious: Yes (Hospitalization)
  Sender: FDA-Public Use
  Company Number: DE-ABBOTT-08P-062-0445433-00

PATIENT
  Sex: Female

DRUGS (2)
  1. HUMIRA [Suspect]
     Indication: CROHN'S DISEASE
     Dosage: 80MG INITIAL THEN 40MG EVERY OTHER WEEK
     Route: 058
  2. HUMIRA [Suspect]
     Route: 058
     Dates: start: 20070827, end: 20070827

REACTIONS (2)
  - CEREBROVASCULAR ACCIDENT [None]
  - PARAESTHESIA [None]
